FAERS Safety Report 6682787-0 (Version None)
Quarter: 2010Q2

REPORT INFORMATION
  Report Type: 
  Country: None (occurrence: None)
  Receive Date: 20100413
  Receipt Date: 20100329
  Transmission Date: 20101027
  Serious: Yes (Other)
  Sender: FDA-Public Use
  Company Number: AUR-APL-2010-01006

PATIENT
  Age: 70 Year
  Sex: Female
  Weight: 113.8529 kg

DRUGS (2)
  1. RISPERIDONE [Suspect]
     Dosage: 4MG - DAILY - ORAL
     Route: 048
  2. GABAPENTIN [Concomitant]

REACTIONS (2)
  - BLOOD CHOLESTEROL INCREASED [None]
  - BLOOD TRIGLYCERIDES INCREASED [None]
